FAERS Safety Report 25250083 (Version 1)
Quarter: 2025Q2

REPORT INFORMATION
  Report Type: Spontaneous
  Country: US (occurrence: US)
  Receive Date: 20250429
  Receipt Date: 20250429
  Transmission Date: 20250717
  Serious: Yes (Disabling, Other)
  Sender: BRISTOL-MYERS SQUIBB COMPANY
  Company Number: US-MLMSERVICE-20250410-PI476283-00323-1

PATIENT
  Age: 32 Year
  Sex: Female

DRUGS (1)
  1. TRIAMCINOLONE ACETONIDE [Suspect]
     Active Substance: TRIAMCINOLONE ACETONIDE
     Indication: Keloid scar
     Route: 026

REACTIONS (5)
  - Retinal artery occlusion [Recovering/Resolving]
  - Retinal vein occlusion [Recovering/Resolving]
  - Blindness unilateral [Recovering/Resolving]
  - Retinal haemorrhage [Recovered/Resolved]
  - Off label use [Unknown]
